FAERS Safety Report 10248620 (Version 3)
Quarter: 2014Q3

REPORT INFORMATION
  Report Type: Spontaneous
  Country: IT (occurrence: None)
  Receive Date: 20140618
  Receipt Date: 20140731
  Transmission Date: 20150326
  Serious: Yes (Hospitalization, Other)
  Sender: FDA-Public Use
  Company Number: AUR-APL-2014-06116

PATIENT
  Age: 81 Year
  Sex: Male

DRUGS (8)
  1. SPIRIVA [Concomitant]
     Active Substance: TIOTROPIUM BROMIDE MONOHYDRATE
  2. CEFTRIAXONE. [Suspect]
     Active Substance: CEFTRIAXONE
     Indication: HYPERPYREXIA
     Route: 030
     Dates: start: 20140423, end: 20140423
  3. ALIFUS (FLUTICASONE PROPIONATE, SALMETEROL XINAFOATE) [Concomitant]
  4. AMIODARONE (AMIDARONE) [Concomitant]
  5. LASIX [Concomitant]
     Active Substance: FUROSEMIDE
  6. PLAVIX [Concomitant]
     Active Substance: CLOPIDOGREL BISULFATE
  7. BISOPROLOL (BISOPROLOL) [Concomitant]
     Active Substance: BISOPROLOL
  8. POTASSIUM CANRENOATE (POTASSIUM CANRENOATE) [Concomitant]

REACTIONS (6)
  - Blood lactic acid increased [None]
  - Blood gases abnormal [None]
  - Dyspnoea [None]
  - Hypocapnia [None]
  - Hypoxia [None]
  - Urticaria [None]

NARRATIVE: CASE EVENT DATE: 20140423
